FAERS Safety Report 20661586 (Version 1)
Quarter: 2022Q2

REPORT INFORMATION
  Report Type: Spontaneous
  Country: US (occurrence: US)
  Receive Date: 20220401
  Receipt Date: 20220401
  Transmission Date: 20220721
  Serious: Yes (Other)
  Sender: FDA-Public Use
  Company Number: US-GLAXOSMITHKLINE-US2022GSK058023

PATIENT
  Sex: Male

DRUGS (6)
  1. ZANTAC [Suspect]
     Active Substance: RANITIDINE HYDROCHLORIDE
     Indication: Gastroenterostomy
     Dosage: 75 MG
     Route: 065
     Dates: start: 199902, end: 201911
  2. ZANTAC [Suspect]
     Active Substance: RANITIDINE HYDROCHLORIDE
     Indication: Gastroenterostomy
     Dosage: 75 MG
     Route: 065
     Dates: start: 199902, end: 201911
  3. RANITIDINE [Suspect]
     Active Substance: RANITIDINE
     Indication: Gastroenterostomy
     Dosage: 75 MG, QD
     Route: 065
     Dates: end: 201911
  4. RANITIDINE [Suspect]
     Active Substance: RANITIDINE
     Indication: Gastroenterostomy
     Dosage: 75 MG, QD
     Route: 065
     Dates: end: 201911
  5. RANITIDINE [Suspect]
     Active Substance: RANITIDINE
     Indication: Gastroenterostomy
     Dosage: 75 MG, QD
     Route: 065
     Dates: end: 201911
  6. RANITIDINE [Suspect]
     Active Substance: RANITIDINE
     Indication: Gastroenterostomy
     Dosage: 75 MG, QD
     Route: 065
     Dates: end: 201911

REACTIONS (1)
  - Prostate cancer [Unknown]
